FAERS Safety Report 6608692-3 (Version None)
Quarter: 2010Q1

REPORT INFORMATION
  Report Type: 
  Country: None (occurrence: None)
  Receive Date: 20100223
  Receipt Date: 20100209
  Transmission Date: 20100710
  Serious: Yes (Other)
  Sender: FDA-Public Use
  Company Number: MC201000048

PATIENT
  Age: 39 Year
  Sex: Male
  Weight: 80 kg

DRUGS (7)
  1. ANGIOMAX [Suspect]
     Indication: HEART TRANSPLANT
     Dosage: 1 MG/KG, BOLUS, INTRAVENOUS 50 MG, ADDED TO CPB PRIMING SOLUTION 2.5 MG/KG, HR, INTRAVENOUS
     Route: 042
  2. LEPIRUDIN (LEPIRUDIN) [Concomitant]
  3. METHYLPREDNISOLONE [Concomitant]
  4. THYMOGLOBULIN (AMINOACETIC ACID, ANTITHYMOCTE IMMUNOGLOBULIN, MANNITOL [Concomitant]
  5. TACROLIMUS [Concomitant]
  6. MYCOPHENOLATE MOFETIL [Concomitant]
  7. PREDNISONE TAB [Concomitant]

REACTIONS (2)
  - LACUNAR INFARCTION [None]
  - OFF LABEL USE [None]
